FAERS Safety Report 9995085 (Version 1)
Quarter: 2014Q1

REPORT INFORMATION
  Report Type: Spontaneous
  Country: FR (occurrence: None)
  Receive Date: 20140307
  Receipt Date: 20140307
  Transmission Date: 20141002
  Serious: Yes (Hospitalization)
  Sender: FDA-Public Use
  Company Number: JPI-P-003164

PATIENT
  Age: 61 Year
  Sex: Female

DRUGS (6)
  1. XYREM (SODIUM OXYBATE) ORAL SOLUTION, 500MG/ML [Suspect]
     Indication: CATAPLEXY
     Route: 048
     Dates: start: 20060315, end: 20061211
  2. BOTULINUM TOXIN TYPE A (BOTULINUM TOXIN TYPE A) [Concomitant]
  3. RALOXIFENE HYDROCHLORIDE [Concomitant]
  4. SPIRONOLACTONE [Concomitant]
  5. PROGUANIL [Concomitant]
  6. CHLOROQUINE [Concomitant]

REACTIONS (9)
  - Visual impairment [None]
  - Balance disorder [None]
  - Anxiety [None]
  - Amnesia [None]
  - Hyperhidrosis [None]
  - Nervousness [None]
  - Vision blurred [None]
  - Insomnia [None]
  - Fatigue [None]
